FAERS Safety Report 25228337 (Version 2)
Quarter: 2025Q2

REPORT INFORMATION
  Report Type: Spontaneous
  Country: ES (occurrence: ES)
  Receive Date: 20250423
  Receipt Date: 20250502
  Transmission Date: 20250717
  Serious: Yes (Hospitalization, Other)
  Sender: TEVA
  Company Number: ES-TEVA-VS-3323487

PATIENT
  Age: 70 Year
  Sex: Male

DRUGS (2)
  1. SUNITINIB [Suspect]
     Active Substance: SUNITINIB
     Indication: Renal cell carcinoma stage IV
     Dosage: FOR 4 WEEKS
     Route: 048
  2. SUNITINIB [Suspect]
     Active Substance: SUNITINIB
     Indication: Renal cell carcinoma stage IV
     Dosage: READMINISTERED SUNITINIB AT REDUCED DOSE OF 37.5 MG/24H
     Route: 065

REACTIONS (9)
  - Toxic skin eruption [Recovering/Resolving]
  - Stomatitis [Recovered/Resolved]
  - Palmar-plantar erythrodysaesthesia syndrome [Recovered/Resolved]
  - Male reproductive tract disorder [Recovering/Resolving]
  - Oedema genital [Recovered/Resolved]
  - Constipation [Recovered/Resolved]
  - Skin toxicity [Recovering/Resolving]
  - Toxicity to various agents [Recovering/Resolving]
  - Anaemia [Recovered/Resolved]
